FAERS Safety Report 5301435-5 (Version None)
Quarter: 2007Q2

REPORT INFORMATION
  Report Type: 
  Country: None (occurrence: None)
  Receive Date: 20070418
  Receipt Date: 20070406
  Transmission Date: 20071010
  Serious: Yes (Other)
  Sender: FDA-Public Use
  Company Number: US-PFIZER INC-2007012003

PATIENT
  Sex: Female
  Weight: 54.4 kg

DRUGS (2)
  1. CHANTIX [Suspect]
     Indication: SMOKING CESSATION THERAPY
     Dates: start: 20070213, end: 20070101
  2. ZOLOFT [Suspect]
     Indication: DEPRESSION

REACTIONS (11)
  - AGITATION [None]
  - ASTHENIA [None]
  - CHRONIC OBSTRUCTIVE PULMONARY DISEASE [None]
  - DISORIENTATION [None]
  - DIZZINESS [None]
  - DYSKINESIA [None]
  - EMPHYSEMA [None]
  - EUPHORIC MOOD [None]
  - HYPOAESTHESIA [None]
  - MUSCULAR WEAKNESS [None]
  - OSTEOPOROSIS [None]
